FAERS Safety Report 10017745 (Version 1)
Quarter: 2014Q1

REPORT INFORMATION
  Report Type: Spontaneous
  Country: US (occurrence: US)
  Receive Date: 20140318
  Receipt Date: 20140318
  Transmission Date: 20141002
  Serious: No
  Sender: FDA-Public Use
  Company Number: US-BRISTOL-MYERS SQUIBB COMPANY-18760108

PATIENT
  Age: 69 Year
  Sex: Male
  Weight: 97.5 kg

DRUGS (15)
  1. ERBITUX [Suspect]
     Indication: LUNG NEOPLASM MALIGNANT
     Dosage: SECOND :02APR2013
     Dates: start: 20130326
  2. CLONIDINE PATCH [Concomitant]
  3. MIRALAX [Concomitant]
  4. PLAVIX [Concomitant]
  5. ASPIRIN [Concomitant]
  6. NORVASC [Concomitant]
     Indication: BLOOD PRESSURE
  7. METOPROLOL [Concomitant]
     Indication: BLOOD PRESSURE
  8. SIMVASTATIN [Concomitant]
  9. TERAZOSIN [Concomitant]
     Indication: BLOOD PRESSURE
  10. DIOVAN [Concomitant]
  11. GABAPENTIN [Concomitant]
  12. LORTAB [Concomitant]
  13. HYDROCHLOROTHIAZIDE [Concomitant]
  14. AMITIZA [Concomitant]
     Indication: GASTRIC DISORDER
  15. ZEGERID [Concomitant]

REACTIONS (1)
  - Rash [Unknown]
